FAERS Safety Report 7235932-2 (Version None)
Quarter: 2011Q1

REPORT INFORMATION
  Report Type: 
  Country: None (occurrence: None)
  Receive Date: 20110120
  Receipt Date: 20110112
  Transmission Date: 20110831
  Serious: Yes (Hospitalization)
  Sender: FDA-Public Use
  Company Number: A0802704A

PATIENT
  Age: 70 Year
  Sex: Female
  Weight: 113.6 kg

DRUGS (11)
  1. CELEXA [Concomitant]
  2. ATIVAN [Concomitant]
  3. AVANDIA [Suspect]
     Indication: DIABETES MELLITUS
     Dosage: 4MG PER DAY
     Route: 048
     Dates: start: 20021101, end: 20070801
  4. CLIMARA [Concomitant]
  5. PAMELOR [Concomitant]
  6. ZESTORETIC [Concomitant]
  7. ASPIRIN [Concomitant]
  8. LIPITOR [Concomitant]
  9. ATENOLOL [Concomitant]
  10. NPH INSULIN [Concomitant]
  11. SYNTHROID [Concomitant]

REACTIONS (3)
  - CARDIAC FAILURE CONGESTIVE [None]
  - CEREBRAL INFARCTION [None]
  - CEREBROVASCULAR ACCIDENT [None]
